FAERS Safety Report 17500742 (Version 1)
Quarter: 2020Q1

REPORT INFORMATION
  Report Type: Spontaneous
  Country: ES (occurrence: ES)
  Receive Date: 20200305
  Receipt Date: 20200305
  Transmission Date: 20200409
  Serious: Yes (Hospitalization)
  Sender: FDA-Public Use
  Company Number: ES-TEVA-2020-ES-1195094

PATIENT
  Age: 94 Year
  Sex: Female

DRUGS (4)
  1. RELVARELLIPTA184MCG/22MCGPOLVOPARAINHALACION(UNIDOSIS)3 [Concomitant]
     Indication: ASTHMA
     Dosage: 1 DOSAGE FORMS
     Route: 055
     Dates: start: 20160928
  2. ENALAPRIL+HIDROCLOROTIAZIDA [Suspect]
     Active Substance: ENALAPRIL\HYDROCHLOROTHIAZIDE
     Indication: HYPERTENSION
     Dosage: ENALAPRIL/HIDROCLOROTIAZIDA 20/12.5 MG
     Route: 048
     Dates: start: 20160928, end: 20190522
  3. AMLODIPINO5MG30COMPRIMIDOS [Concomitant]
     Indication: HYPERTENSION
     Dosage: 5 MG
     Route: 048
     Dates: start: 20190507
  4. PROULCO30MGCAPSULASGASTRORRESISTENTES,28C?PSULAS [Concomitant]
     Indication: ARTHRALGIA

REACTIONS (1)
  - Hyponatraemia [Recovered/Resolved]

NARRATIVE: CASE EVENT DATE: 20190522
